FAERS Safety Report 16423465 (Version 2)
Quarter: 2019Q2

REPORT INFORMATION
  Report Type: Spontaneous
  Country: US (occurrence: US)
  Receive Date: 20190612
  Receipt Date: 20190624
  Transmission Date: 20190711
  Serious: Yes (Hospitalization)
  Sender: FDA-Public Use
  Company Number: US-JNJFOC-20190614482

PATIENT
  Sex: Male

DRUGS (1)
  1. NEUTROGENA WET SKIN KIDS BEACH AND POOL SUNBLOCK SPF 70 [Suspect]
     Active Substance: AVOBENZONE\HOMOSALATE\OCTISALATE\OCTOCRYLENE\OXYBENZONE
     Indication: PROPHYLAXIS AGAINST SOLAR RADIATION
     Dosage: THIN LAYER ONCE
     Route: 061

REACTIONS (1)
  - Hypersensitivity [Not Recovered/Not Resolved]
